FAERS Safety Report 20976184 (Version 1)
Quarter: 2022Q2

REPORT INFORMATION
  Report Type: Spontaneous
  Country: US (occurrence: US)
  Receive Date: 20220617
  Receipt Date: 20220617
  Transmission Date: 20220721
  Serious: No
  Sender: FDA-Public Use
  Company Number: US-drreddys-SPO/USA/22/0151093

PATIENT
  Age: 21 Year

DRUGS (1)
  1. ZENATANE [Suspect]
     Active Substance: ISOTRETINOIN
     Indication: Product used for unknown indication
     Dosage: RMA ISSUE DATE: 21 JANUARY 2022 01:16:36 PM; 07 FEBRUARY 2022 09:22:36 PM; 15 MARCH 2022 12:03:52 PM

REACTIONS (1)
  - Treatment noncompliance [Unknown]
